FAERS Safety Report 7129184-1 (Version None)
Quarter: 2010Q4

REPORT INFORMATION
  Report Type: 
  Country: None (occurrence: None)
  Receive Date: 20101130
  Receipt Date: 20101122
  Transmission Date: 20110411
  Serious: Yes (Hospitalization)
  Sender: FDA-Public Use
  Company Number: CG-MERCK-1011USA03235

PATIENT
  Age: 32 Year
  Sex: Female

DRUGS (1)
  1. STROMECTOL [Suspect]
     Indication: ONCHOCERCIASIS
     Route: 048
     Dates: start: 20100902, end: 20100902

REACTIONS (8)
  - BACK PAIN [None]
  - COMA [None]
  - DEPRESSED LEVEL OF CONSCIOUSNESS [None]
  - ENCEPHALOPATHY [None]
  - HEADACHE [None]
  - MUSCULOSKELETAL STIFFNESS [None]
  - PYREXIA [None]
  - SOMNOLENCE [None]
